FAERS Safety Report 17373796 (Version 1)
Quarter: 2020Q1

REPORT INFORMATION
  Report Type: Report from Study
  Country: ES (occurrence: ES)
  Receive Date: 20200205
  Receipt Date: 20200205
  Transmission Date: 20200409
  Serious: Yes (Hospitalization)
  Sender: FDA-Public Use
  Company Number: ES-PFIZER INC-2020029724

PATIENT
  Age: 86 Year
  Sex: Female
  Weight: 66.6 kg

DRUGS (4)
  1. FUROSEMIDE. [Suspect]
     Active Substance: FUROSEMIDE
     Indication: HYPERTENSION
     Dosage: 40 MG, DAILY
     Dates: start: 20180929
  2. BLINDED PLACEBO [Suspect]
     Active Substance: INVESTIGATIONAL PRODUCT
     Indication: NEUROENDOCRINE CARCINOMA
     Dosage: 3 MG, 2X/DAY
     Route: 048
     Dates: start: 20180516, end: 20200120
  3. BLINDED AXITINIB [Suspect]
     Active Substance: AXITINIB
     Indication: NEUROENDOCRINE CARCINOMA
     Dosage: 3 MG, 2X/DAY
     Route: 048
     Dates: start: 20180516, end: 20200120
  4. SANDOSTATIN LAR DEPOT [Suspect]
     Active Substance: OCTREOTIDE ACETATE
     Indication: NEUROENDOCRINE CARCINOMA
     Dosage: 30 MG, MONTHLY
     Route: 030
     Dates: start: 20180516, end: 20191223

REACTIONS (1)
  - Prerenal failure [Recovered/Resolved]

NARRATIVE: CASE EVENT DATE: 20200121
